FAERS Safety Report 7124840-3 (Version None)
Quarter: 2010Q4

REPORT INFORMATION
  Report Type: 
  Country: None (occurrence: None)
  Receive Date: 20101123
  Receipt Date: 20101123
  Transmission Date: 20110411
  Serious: Yes (Other)
  Sender: FDA-Public Use
  Company Number: None

PATIENT
  Age: 67 Year
  Sex: Male
  Weight: 110.2241 kg

DRUGS (1)
  1. BACLOFEN [Suspect]
     Indication: CEREBROVASCULAR ACCIDENT
     Dosage: 5 MG 3 X A DAY PO
     Route: 048
     Dates: start: 20101005, end: 20101105

REACTIONS (3)
  - ASTHENIA [None]
  - GAIT DISTURBANCE [None]
  - SOMNOLENCE [None]
